FAERS Safety Report 5099741-5 (Version None)
Quarter: 2006Q3

REPORT INFORMATION
  Report Type: 
  Country: None (occurrence: None)
  Receive Date: 20060908
  Receipt Date: 20060821
  Transmission Date: 20061208
  Serious: Yes (Hospitalization)
  Sender: FDA-Public Use
  Company Number: GB-ROCHE-461579

PATIENT
  Age: 18 Year
  Sex: Female
  Weight: 46 kg

DRUGS (3)
  1. MEFLOQUINE HCL [Suspect]
     Indication: MALARIA PROPHYLAXIS
     Route: 048
     Dates: start: 19970805, end: 19970930
  2. BETNOVATE [Concomitant]
     Route: 061
  3. ALBUTEROL SPIROS [Concomitant]

REACTIONS (6)
  - AGITATION [None]
  - DELUSION [None]
  - DELUSIONAL DISORDER, PERSECUTORY TYPE [None]
  - HYPOMANIA [None]
  - INSOMNIA [None]
  - TEARFULNESS [None]
